FAERS Safety Report 5236766-0 (Version None)
Quarter: 2007Q1

REPORT INFORMATION
  Report Type: 
  Country: None (occurrence: None)
  Receive Date: 20061208
  Receipt Date: 20050712
  Transmission Date: 20070707
  Serious: Yes (Other)
  Sender: FDA-Public Use
  Company Number: 2005UW07784

PATIENT
  Age: 61 Year
  Sex: Female
  Weight: 68.038 kg

DRUGS (2)
  1. CRESTOR [Suspect]
     Indication: BLOOD CHOLESTEROL
     Dosage: 10 MG QD PO
     Route: 048
  2. SYTHROID [Concomitant]

REACTIONS (3)
  - ASTHENIA [None]
  - CREPITATIONS [None]
  - HYPOAESTHESIA [None]
